FAERS Safety Report 9308401 (Version 1)
Quarter: 2013Q2

REPORT INFORMATION
  Report Type: Spontaneous
  Country: US (occurrence: US)
  Receive Date: 20130524
  Receipt Date: 20130524
  Transmission Date: 20140414
  Serious: No
  Sender: FDA-Public Use
  Company Number: US-PFIZER INC-2013157643

PATIENT
  Age: 54 Year
  Sex: Female
  Weight: 77.1 kg

DRUGS (2)
  1. PRISTIQ [Suspect]
     Dosage: 50 MG, 1X/DAY
     Route: 048
     Dates: start: 201012, end: 201305
  2. TEMAZEPAM [Concomitant]
     Dosage: UNK

REACTIONS (3)
  - Heart rate irregular [Unknown]
  - Heart rate increased [Unknown]
  - Dizziness [Unknown]
